FAERS Safety Report 5400208-2 (Version None)
Quarter: 2007Q3

REPORT INFORMATION
  Report Type: 
  Country: None (occurrence: None)
  Receive Date: 20070730
  Receipt Date: 20070720
  Transmission Date: 20080115
  Serious: Yes (Hospitalization)
  Sender: FDA-Public Use
  Company Number: JP-ASTRAZENECA-2007AP02814

PATIENT
  Age: 24618 Day
  Sex: Female
  Weight: 58 kg

DRUGS (7)
  1. FASLODEX [Suspect]
     Indication: BREAST CANCER
     Dosage: PERIOD 1
     Route: 030
     Dates: start: 20070427, end: 20070427
  2. FASLODEX [Suspect]
     Dosage: PERIOD 2
     Route: 030
  3. FASLODEX [Suspect]
     Dosage: PERIOD 3
     Route: 030
  4. INNOLET N [Concomitant]
     Indication: DIABETES MELLITUS
     Route: 058
  5. NORVASC [Concomitant]
     Indication: HYPERTENSION
     Route: 048
  6. DIOVAN [Concomitant]
     Indication: HYPERTENSION
     Route: 048
  7. INNOLET R [Concomitant]
     Indication: DIABETES MELLITUS
     Route: 058

REACTIONS (1)
  - OPTIC NEURITIS [None]
